FAERS Safety Report 13229189 (Version 2)
Quarter: 2017Q1

REPORT INFORMATION
  Report Type: Spontaneous
  Country: MX (occurrence: MX)
  Receive Date: 20170214
  Receipt Date: 20170217
  Transmission Date: 20170428
  Serious: Yes (Death, Hospitalization, Other)
  Sender: FDA-Public Use
  Company Number: MX-UCBSA-2017005855

PATIENT
  Sex: Male

DRUGS (1)
  1. CIMZIA [Suspect]
     Active Substance: CERTOLIZUMAB PEGOL
     Indication: RHEUMATOID ARTHRITIS
     Dosage: 200 MG, EV 2 WEEKS(QOW)
     Route: 058
     Dates: start: 2013, end: 201508

REACTIONS (10)
  - Seizure [Fatal]
  - Catatonia [Fatal]
  - Respiratory arrest [Fatal]
  - Uveitis [Recovered/Resolved]
  - Gastrointestinal haemorrhage [Fatal]
  - Acute kidney injury [Fatal]
  - Leukocytosis [Fatal]
  - Septic shock [Fatal]
  - Cataract [Recovered/Resolved]
  - Loss of consciousness [Fatal]

NARRATIVE: CASE EVENT DATE: 201508
